FAERS Safety Report 8598420-7 (Version None)
Quarter: 2012Q3

REPORT INFORMATION
  Report Type: 
  Country: None (occurrence: None)
  Receive Date: 20120816
  Receipt Date: 20120814
  Transmission Date: 20120928
  Serious: Yes (Death)
  Sender: FDA-Public Use
  Company Number: US-ROCHE-1059966

PATIENT
  Age: 49 Year
  Sex: Male
  Weight: 51.756 kg

DRUGS (1)
  1. XELODA [Suspect]
     Indication: PANCREATIC CARCINOMA
     Route: 048
     Dates: start: 20120216, end: 20120415

REACTIONS (2)
  - ABDOMINAL DISCOMFORT [None]
  - DEATH [None]
